FAERS Safety Report 18479881 (Version 2)
Quarter: 2023Q1

REPORT INFORMATION
  Report Type: Spontaneous
  Country: US (occurrence: US)
  Receive Date: 20201109
  Receipt Date: 20230113
  Transmission Date: 20230418
  Serious: No
  Sender: FDA-Public Use
  Company Number: US-PFIZER INC-2020405739

PATIENT
  Age: 65 Year
  Sex: Female

DRUGS (1)
  1. XELJANZ [Suspect]
     Active Substance: TOFACITINIB CITRATE
     Indication: Rheumatoid arthritis
     Dosage: 5 MG, 2X/DAY, [5 MG PO (ORAL) BID (TWICE A DAY)]
     Route: 048
     Dates: start: 2020, end: 202204

REACTIONS (2)
  - Condition aggravated [Unknown]
  - Malaise [Unknown]
